FAERS Safety Report 7099476-3 (Version None)
Quarter: 2010Q4

REPORT INFORMATION
  Report Type: 
  Country: None (occurrence: None)
  Receive Date: 20101112
  Receipt Date: 20101102
  Transmission Date: 20110411
  Serious: Yes (Life-Threatening, Hospitalization, Disabling, Other)
  Sender: FDA-Public Use
  Company Number: US-MERCK-1010USA01868

PATIENT
  Age: 66 Year
  Sex: Female

DRUGS (6)
  1. FOSAMAX [Suspect]
     Indication: OSTEOPOROSIS
     Route: 048
     Dates: end: 20100401
  2. LIPITOR [Concomitant]
     Route: 065
  3. ALLEGRA [Concomitant]
     Route: 065
  4. CALTRATE [Concomitant]
     Route: 065
  5. VITAMINS (UNSPECIFIED) [Concomitant]
     Route: 065
  6. LISINOPRIL [Concomitant]
     Route: 048

REACTIONS (1)
  - FEMUR FRACTURE [None]
